FAERS Safety Report 6242970-5 (Version None)
Quarter: 2009Q2

REPORT INFORMATION
  Report Type: 
  Country: None (occurrence: None)
  Receive Date: 20090624
  Receipt Date: 20090615
  Transmission Date: 20091009
  Serious: Yes (Hospitalization)
  Sender: FDA-Public Use
  Company Number: US-AMGEN-KDL351796

PATIENT
  Sex: Male
  Weight: 90.8 kg

DRUGS (12)
  1. PROCRIT [Suspect]
     Indication: RENAL FAILURE CHRONIC
     Route: 058
     Dates: start: 19990101
  2. LEVOTHYROXINE [Concomitant]
     Route: 048
  3. LASIX [Concomitant]
     Route: 048
  4. GLIMEPIRIDE [Concomitant]
     Route: 048
  5. AVAPRO [Concomitant]
     Route: 048
  6. COLCHICINE [Concomitant]
  7. CHROMAGEN [Concomitant]
     Route: 048
  8. SIMVASTATIN [Concomitant]
     Route: 048
  9. ALLEGRA [Concomitant]
     Route: 048
  10. ADVAIR HFA [Concomitant]
  11. PRO-AIR (PARKE DAVIS) [Concomitant]
  12. NOVALOG INSULIN [Concomitant]

REACTIONS (2)
  - FATIGUE [None]
  - RECURRENT CANCER [None]
